FAERS Safety Report 7200216-5 (Version None)
Quarter: 2010Q4

REPORT INFORMATION
  Report Type: 
  Country: None (occurrence: None)
  Receive Date: 20101228
  Receipt Date: 20101216
  Transmission Date: 20110411
  Serious: Yes (Death)
  Sender: FDA-Public Use
  Company Number: A0836818A

PATIENT
  Sex: Male
  Weight: 85 kg

DRUGS (4)
  1. PAZOPANIB [Suspect]
     Indication: RENAL CELL CARCINOMA
     Dosage: 800MG PER DAY
     Route: 048
     Dates: start: 20091118, end: 20101223
  2. REPAGLINIDE [Concomitant]
     Indication: DIABETES MELLITUS
     Dosage: 2MG THREE TIMES PER DAY
     Route: 048
     Dates: start: 20090101
  3. METFORMIN [Concomitant]
     Dosage: 850MG PER DAY
     Route: 048
     Dates: start: 20090101
  4. COZAAR [Concomitant]
     Dosage: 50MG PER DAY
     Route: 048
     Dates: start: 20090101

REACTIONS (1)
  - DEATH [None]
